FAERS Safety Report 7906322-1 (Version None)
Quarter: 2011Q4

REPORT INFORMATION
  Report Type: 
  Country: None (occurrence: None)
  Receive Date: 20111110
  Receipt Date: 20111107
  Transmission Date: 20120403
  Serious: Yes (Death)
  Sender: FDA-Public Use
  Company Number: AT-BAYER-2011-087886

PATIENT
  Age: 21 Year
  Sex: Female

DRUGS (2)
  1. LOVENOX [Concomitant]
  2. YASMIN [Suspect]
     Indication: CONTRACEPTION
     Route: 048

REACTIONS (1)
  - DEATH [None]
